FAERS Safety Report 6301940-9 (Version None)
Quarter: 2009Q3

REPORT INFORMATION
  Report Type: 
  Country: None (occurrence: None)
  Receive Date: 20090807
  Receipt Date: 20090731
  Transmission Date: 20100115
  Serious: Yes (Hospitalization)
  Sender: FDA-Public Use
  Company Number: JP-EISAI INC.-E2090-00801-SPO-JP

PATIENT
  Sex: Male

DRUGS (6)
  1. EXCEGRAN [Suspect]
     Indication: EPILEPSY
     Route: 048
     Dates: start: 20090713, end: 20090723
  2. DROXIDOPA [Concomitant]
     Indication: PARKINSON'S DISEASE
     Route: 048
  3. TM POWDER (SUPPLEMENT) [Concomitant]
     Indication: GASTRITIS
     Route: 048
  4. FORSENID [Concomitant]
     Indication: CONSTIPATION
     Route: 048
  5. PARIET [Concomitant]
     Indication: GASTRIC ULCER
     Route: 048
  6. LEPRINTON [Concomitant]
     Indication: PARKINSON'S DISEASE
     Route: 048

REACTIONS (1)
  - ANAEMIA [None]
